FAERS Safety Report 7712979-0 (Version None)
Quarter: 2011Q3

REPORT INFORMATION
  Report Type: 
  Country: None (occurrence: None)
  Receive Date: 20110826
  Receipt Date: 20110822
  Transmission Date: 20111222
  Serious: Yes (Death, Hospitalization)
  Sender: FDA-Public Use
  Company Number: FR-SANOFI-AVENTIS-2011SA054214

PATIENT
  Age: 85 Year
  Sex: Male

DRUGS (3)
  1. ASPIRIN [Suspect]
     Route: 048
  2. PLAVIX [Suspect]
     Route: 048
  3. LOVENOX [Suspect]
     Route: 058

REACTIONS (3)
  - CEREBRAL HAEMATOMA [None]
  - SEPTIC SHOCK [None]
  - HAEMATOMA [None]
